FAERS Safety Report 16359838 (Version 1)
Quarter: 2019Q2

REPORT INFORMATION
  Report Type: Spontaneous
  Country: CN (occurrence: CN)
  Receive Date: 20190528
  Receipt Date: 20190528
  Transmission Date: 20190711
  Serious: Yes (Other)
  Sender: FDA-Public Use
  Company Number: CN-BAXTER-2019BAX010258

PATIENT
  Age: 64 Year
  Sex: Female
  Weight: 61.5 kg

DRUGS (12)
  1. 0.9% SODIUM CHLORIDE INJECTION [Suspect]
     Active Substance: SODIUM CHLORIDE
     Dosage: THIRD CHEMOTHERAPY. ENDOXAN 940 MG + NS 50 ML
     Route: 042
     Dates: start: 20190419, end: 20190419
  2. 0.9% SODIUM CHLORIDE INJECTION [Suspect]
     Active Substance: SODIUM CHLORIDE
     Dosage: DRUG RE-INTRODUCED. ENDOXAN + NS
     Route: 042
  3. 0.9% SODIUM CHLORIDE INJECTION [Suspect]
     Active Substance: SODIUM CHLORIDE
     Dosage: THIRD TIME CHEMOTHERAPY. PHARMORUBICIN RD 134 MG + NS 100 ML
     Route: 041
     Dates: start: 20190419, end: 20190419
  4. PHARMORUBICIN RD [Suspect]
     Active Substance: EPIRUBICIN
     Indication: BREAST CANCER FEMALE
     Dosage: FIRST AND SECOND CHEMOTHERAPY. PHARMORUBICIN RD + NS
     Route: 041
  5. ENDOXAN [Suspect]
     Active Substance: CYCLOPHOSPHAMIDE
     Indication: BREAST CANCER FEMALE
     Dosage: FIRST AND SECOND CHEMOTHERAPY. ENDOXAN + NS (NORMAL SALINE)
     Route: 042
  6. ENDOXAN [Suspect]
     Active Substance: CYCLOPHOSPHAMIDE
     Dosage: DRUG RE-INTRODUCED. ENDOXAN + NS
     Route: 042
  7. ENDOXAN [Suspect]
     Active Substance: CYCLOPHOSPHAMIDE
     Dosage: THIRD TIME CHEMOTHERAPY. ENDOXAN 940 MG + NS 50 ML
     Route: 042
     Dates: start: 20190419, end: 20190419
  8. 0.9% SODIUM CHLORIDE INJECTION [Suspect]
     Active Substance: SODIUM CHLORIDE
     Indication: MEDICATION DILUTION
     Dosage: FIRST AND SECOND CHEMOTHERAPY. ENDOXAN + NS
     Route: 042
  9. 0.9% SODIUM CHLORIDE INJECTION [Suspect]
     Active Substance: SODIUM CHLORIDE
     Dosage: FIRST AND SECOND CHEMOTHERAPY. PHARMORUBICIN RD + NS
     Route: 041
  10. 0.9% SODIUM CHLORIDE INJECTION [Suspect]
     Active Substance: SODIUM CHLORIDE
     Dosage: DRUG RE-INTRODUCED. PHARMORUBICIN RD + NS
     Route: 041
  11. PHARMORUBICIN RD [Suspect]
     Active Substance: EPIRUBICIN
     Dosage: THIRD TIME CHEMOTHERAPY. PHARMORUBICIN RD 134 MG + NS 100 ML
     Route: 041
     Dates: start: 20190419, end: 20190419
  12. PHARMORUBICIN RD [Suspect]
     Active Substance: EPIRUBICIN
     Dosage: DRUG RE-INTRODUCED. PHARMORUBICIN RD + NS
     Route: 041

REACTIONS (2)
  - Leukopenia [Recovered/Resolved]
  - Agranulocytosis [Recovered/Resolved]

NARRATIVE: CASE EVENT DATE: 20190427
